FAERS Safety Report 9631666 (Version 1)
Quarter: 2013Q4

REPORT INFORMATION
  Report Type: Spontaneous
  Country: US (occurrence: US)
  Receive Date: 20131018
  Receipt Date: 20131018
  Transmission Date: 20140711
  Serious: No
  Sender: FDA-Public Use
  Company Number: US-009507513-1310USA004143

PATIENT
  Age: 24 Year
  Sex: Female
  Weight: 77.98 kg

DRUGS (1)
  1. NUVARING [Suspect]
     Indication: CONTRACEPTION
     Dosage: 1 RING FOR 3 WEEKS FOLLOWED BY WEEK FREE BREAK
     Route: 067
     Dates: start: 20130924

REACTIONS (2)
  - Device expulsion [Unknown]
  - No adverse event [Unknown]
